FAERS Safety Report 6055874-8 (Version None)
Quarter: 2009Q1

REPORT INFORMATION
  Report Type: 
  Country: None (occurrence: None)
  Receive Date: 20090126
  Receipt Date: 20090121
  Transmission Date: 20090719
  Serious: Yes (Hospitalization)
  Sender: FDA-Public Use
  Company Number: 150767

PATIENT
  Sex: Male

DRUGS (1)
  1. MIDAZOLAM HOSPIRA (MIDAZOLAM HYDROCHLORIDE) [Suspect]
     Dosage: INTRAVENOUS
     Route: 042

REACTIONS (4)
  - DELAYED RECOVERY FROM ANAESTHESIA [None]
  - HAEMODIALYSIS [None]
  - RENAL IMPAIRMENT [None]
  - RESPIRATORY ARREST [None]
